FAERS Safety Report 8382138-X (Version None)
Quarter: 2012Q2

REPORT INFORMATION
  Report Type: 
  Country: None (occurrence: None)
  Receive Date: 20120524
  Receipt Date: 20120522
  Transmission Date: 20120825
  Serious: Yes (Death, Other)
  Sender: FDA-Public Use
  Company Number: IN-PFIZER INC-2012124475

PATIENT
  Sex: Male

DRUGS (1)
  1. SUTENT [Suspect]
     Indication: METASTATIC RENAL CELL CARCINOMA
     Dosage: 50 MG, DAILY FOR 28 DAYS THEN 14 DAYS REST AND RESTART
     Route: 048

REACTIONS (2)
  - HAEMOGLOBIN DECREASED [None]
  - DEATH [None]
